FAERS Safety Report 5571420-7 (Version None)
Quarter: 2007Q4

REPORT INFORMATION
  Report Type: 
  Country: None (occurrence: None)
  Receive Date: 20071221
  Receipt Date: 20071029
  Transmission Date: 20080405
  Serious: No
  Sender: FDA-Public Use
  Company Number: A0691487A

PATIENT
  Age: 51 Year
  Sex: Female

DRUGS (4)
  1. FLONASE [Suspect]
     Indication: RHINITIS
     Dosage: 50MCG UNKNOWN
     Route: 045
  2. FLUTICASONE PROPIONATE [Suspect]
     Indication: RHINITIS
     Dosage: 2SPR TWICE PER DAY
     Route: 045
     Dates: start: 20070624, end: 20070101
  3. ECHINACEA [Concomitant]
  4. NASACORT [Concomitant]

REACTIONS (3)
  - DYSPNOEA [None]
  - HYPERSENSITIVITY [None]
  - OEDEMA MUCOSAL [None]
